FAERS Safety Report 5284634-0 (Version None)
Quarter: 2007Q2

REPORT INFORMATION
  Report Type: 
  Country: None (occurrence: None)
  Receive Date: 20070403
  Receipt Date: 20070321
  Transmission Date: 20071010
  Serious: Yes (Hospitalization)
  Sender: FDA-Public Use
  Company Number: US-ELI_LILLY_AND_COMPANY-US200606004667

PATIENT
  Age: 71 Year
  Sex: Female

DRUGS (5)
  1. FORTEO [Suspect]
     Indication: OSTEOPOROSIS
     Dosage: UNK, UNK
     Dates: start: 20060201, end: 20070217
  2. CARDIZEM [Concomitant]
     Dosage: 180 MG, DAILY (1/D)
  3. NITROGLYCERIN [Concomitant]
     Dosage: 6.5 MG, DAILY (1/D)
  4. QUININE SULFATE [Concomitant]
     Indication: MUSCLE SPASMS
     Dosage: 260 MG, DAILY (1/D)
  5. NITROSTAT [Concomitant]
     Dosage: .4 MG, AS NEEDED
     Route: 060

REACTIONS (11)
  - CARDIAC DISORDER [None]
  - CONTUSION [None]
  - CORONARY ARTERY OCCLUSION [None]
  - COUGH [None]
  - HEART RATE IRREGULAR [None]
  - INJECTION SITE HAEMORRHAGE [None]
  - INJECTION SITE PAIN [None]
  - LIVER DISORDER [None]
  - MUSCLE SPASMS [None]
  - NEURALGIA [None]
  - RHINOVIRUS INFECTION [None]
